FAERS Safety Report 6707036-6 (Version None)
Quarter: 2010Q2

REPORT INFORMATION
  Report Type: 
  Country: None (occurrence: None)
  Receive Date: 20100503
  Receipt Date: 20100419
  Transmission Date: 20101027
  Serious: Yes (Other)
  Sender: FDA-Public Use
  Company Number: PHHY2010US24780

PATIENT
  Sex: Male

DRUGS (1)
  1. GLEEVEC [Suspect]
     Indication: CHRONIC MYELOID LEUKAEMIA
     Dosage: UNK
     Route: 065
     Dates: start: 20050101

REACTIONS (5)
  - BLOOD MAGNESIUM DECREASED [None]
  - COLON OPERATION [None]
  - RENAL NEOPLASM [None]
  - SURGERY [None]
  - THERAPEUTIC EMBOLISATION [None]
